FAERS Safety Report 9702526 (Version 1)
Quarter: 2013Q4

REPORT INFORMATION
  Report Type: Spontaneous
  Country: AU (occurrence: AU)
  Receive Date: 20131121
  Receipt Date: 20131121
  Transmission Date: 20140711
  Serious: Yes (Other)
  Sender: FDA-Public Use
  Company Number: AU-PFIZER INC-2013329885

PATIENT
  Age: 71 Year
  Sex: Male

DRUGS (2)
  1. TRITACE [Suspect]
     Dosage: 1.25 MG, DAILY
     Route: 065
  2. WARFARIN [Concomitant]
     Dosage: UNK

REACTIONS (3)
  - Lower respiratory tract infection [Unknown]
  - Cough [Unknown]
  - Condition aggravated [Unknown]
